FAERS Safety Report 19624089 (Version 4)
Quarter: 2021Q3

REPORT INFORMATION
  Report Type: Report from Study
  Country: US (occurrence: US)
  Receive Date: 20210729
  Receipt Date: 20210903
  Transmission Date: 20211014
  Serious: Yes (Other)
  Sender: FDA-Public Use
  Company Number: US-EMD SERONO-9253968

PATIENT
  Age: 55 Year
  Sex: Female

DRUGS (3)
  1. AMLODIPINE [Concomitant]
     Active Substance: AMLODIPINE BESYLATE
     Indication: BLOOD PRESSURE MEASUREMENT
  2. REBIF [Suspect]
     Active Substance: INTERFERON BETA-1A
     Indication: MULTIPLE SCLEROSIS
     Route: 058
     Dates: start: 20130510, end: 20200501
  3. REBIF [Suspect]
     Active Substance: INTERFERON BETA-1A
     Route: 058
     Dates: start: 20200711

REACTIONS (7)
  - Gastric cancer [Unknown]
  - Fatigue [Unknown]
  - Cerebral ischaemia [Unknown]
  - Hysterectomy [Unknown]
  - Product administration interrupted [Unknown]
  - White blood cell count decreased [Unknown]
  - Colon cancer [Recovering/Resolving]

NARRATIVE: CASE EVENT DATE: 2019
